FAERS Safety Report 8134211-9 (Version None)
Quarter: 2012Q1

REPORT INFORMATION
  Report Type: 
  Country: None (occurrence: None)
  Receive Date: 20120209
  Receipt Date: 20120130
  Transmission Date: 20120608
  Serious: Yes (Other)
  Sender: FDA-Public Use
  Company Number: 2012-0004

PATIENT
  Age: 93 Year
  Sex: Female

DRUGS (1)
  1. CENTAMIN LIQUID [Suspect]
     Indication: HYPOVITAMINOSIS
     Dosage: 1 TBS DAILY

REACTIONS (2)
  - GLOSSODYNIA [None]
  - NAUSEA [None]
